FAERS Safety Report 15879896 (Version 1)
Quarter: 2019Q1

REPORT INFORMATION
  Report Type: Spontaneous
  Country: DE (occurrence: DE)
  Receive Date: 20190128
  Receipt Date: 20190128
  Transmission Date: 20190417
  Serious: Yes (Hospitalization)
  Sender: FDA-Public Use
  Company Number: DE-MYLANLABS-2011S1006197

PATIENT
  Age: 74 Year
  Sex: Female
  Weight: 54.4 kg

DRUGS (15)
  1. CALCILAC                           /00944201/ [Concomitant]
     Dosage: 2 DOSAGE FORM, QD(1DF=CALCIUM 500 MG + COLECALCIFEROL 400 IE   )
     Route: 048
  2. PREDNISOLONE. [Suspect]
     Active Substance: PREDNISOLONE
     Dosage: 17.5 MG,UNK
  3. PANTOZOL [Concomitant]
     Active Substance: PANTOPRAZOLE SODIUM
     Indication: PROPHYLAXIS AGAINST GASTROINTESTINAL ULCER
     Dosage: 40 MG,QD
     Route: 048
  4. PANTOZOL [Concomitant]
     Active Substance: PANTOPRAZOLE SODIUM
     Dosage: 40 UNK(40 MG, GASTRO-RESISTANT TABLET, UNKNOWN   )
  5. ENALAPRIL [Concomitant]
     Active Substance: ENALAPRIL
     Indication: HYPERTENSION
     Dosage: 10 MG,UNK
     Route: 048
  6. ASPIRIN. [Concomitant]
     Active Substance: ASPIRIN
     Indication: CARDIOVASCULAR EVENT PROPHYLAXIS
     Dosage: 100 MG,QD
     Route: 048
  7. ASPIRIN. [Concomitant]
     Active Substance: ASPIRIN
     Dosage: 100 UNK
     Route: 048
  8. PENTALONG [Concomitant]
     Active Substance: PENTAERYTHRITOL TETRANITRATE
     Dosage: 80 UNK
     Route: 048
  9. PREDNISOLONE. [Suspect]
     Active Substance: PREDNISOLONE
     Indication: TEMPORAL ARTERITIS
     Dosage: 25 MG,QD
     Route: 048
     Dates: start: 201010, end: 20110223
  10. ENALAPRIL [Concomitant]
     Active Substance: ENALAPRIL
     Dosage: 20 UNK
  11. SIMVASTATIN. [Suspect]
     Active Substance: SIMVASTATIN
     Indication: HYPERLIPIDAEMIA
     Dosage: 40 MG,QD
     Route: 048
     Dates: end: 20110223
  12. VERAPAMIL [Concomitant]
     Active Substance: VERAPAMIL HYDROCHLORIDE
     Indication: HYPERTENSION
     Dosage: 2 DOSAGE FORM, QD
     Route: 048
  13. PENTALONG [Concomitant]
     Active Substance: PENTAERYTHRITOL TETRANITRATE
     Indication: ANGINA PECTORIS
     Dosage: 80 MG,QD
     Route: 048
  14. ACLASTA [Concomitant]
     Active Substance: ZOLEDRONIC ACID
     Indication: OSTEOPOROSIS
     Dosage: 5 MG, ONCE A YEAR
     Route: 042
     Dates: start: 201006
  15. CALCILAC                           /00944201/ [Concomitant]
     Indication: OSTEOPOROSIS
     Dosage: 1 DF,UNK
     Route: 048

REACTIONS (5)
  - Myopathy [Not Recovered/Not Resolved]
  - Muscle atrophy [Not Recovered/Not Resolved]
  - Cushing^s syndrome [Not Recovered/Not Resolved]
  - Visual impairment [Not Recovered/Not Resolved]
  - Ageusia [Unknown]

NARRATIVE: CASE EVENT DATE: 201101
